FAERS Safety Report 15314950 (Version 2)
Quarter: 2018Q3

REPORT INFORMATION
  Report Type: Spontaneous
  Country: BR (occurrence: BR)
  Receive Date: 20180824
  Receipt Date: 20180907
  Transmission Date: 20181010
  Serious: Yes (Other)
  Sender: FDA-Public Use
  Company Number: BR-009507513-1808BRA007251

PATIENT
  Age: 79 Year
  Sex: Female
  Weight: 60 kg

DRUGS (7)
  1. VALSARTAN. [Concomitant]
     Active Substance: VALSARTAN
     Dosage: 1 TABLET QAM, 1 TABLET QPM
     Route: 048
  2. METOPROLOL SUCCINATE. [Concomitant]
     Active Substance: METOPROLOL SUCCINATE
     Dosage: 1 TABLET QAM, 1 TABLET QPM
     Route: 048
  3. MODURETIC 5?50 [Suspect]
     Active Substance: AMILORIDE HYDROCHLORIDE\HYDROCHLOROTHIAZIDE
     Dosage: 1 TABLET (50 MG) DAILY
     Route: 048
  4. MELATONIN [Concomitant]
     Active Substance: MELATONIN
     Dosage: 1 TABLET (5 MG) BEFORE SLEEP
     Route: 048
     Dates: start: 201802, end: 201805
  5. DEPURA [Concomitant]
     Active Substance: CHOLECALCIFEROL
     Dosage: 1 TABLET (7000 IU) ONCE A WEEK
     Route: 048
  6. JANUMET [Suspect]
     Active Substance: METFORMIN HYDROCHLORIDE\SITAGLIPTIN PHOSPHATE
     Indication: DIABETES MELLITUS
     Dosage: 1 TABLET AT LUNCH AND 1 TABLET AT DINNER
     Route: 048
     Dates: start: 2013, end: 201807
  7. NEUTROFER (FERROUS BISGLYCINATE) [Concomitant]
     Dosage: 1 TABLET (150 MG) BEFORE LUNCH
     Route: 048

REACTIONS (11)
  - Eye swelling [Recovered/Resolved]
  - Visual impairment [Unknown]
  - Glaucoma drug therapy [Unknown]
  - Eye irritation [Recovered/Resolved]
  - Cataract operation [Unknown]
  - Diabetes mellitus inadequate control [Unknown]
  - Drug ineffective [Unknown]
  - Glaucoma [Unknown]
  - Cataract [Unknown]
  - Cataract operation [Unknown]
  - Eye allergy [Recovered/Resolved]

NARRATIVE: CASE EVENT DATE: 2014
